FAERS Safety Report 18789413 (Version 2)
Quarter: 2022Q1

REPORT INFORMATION
  Report Type: Other
  Country: US (occurrence: US)
  Receive Date: 20210125
  Receipt Date: 20220123
  Transmission Date: 20220423
  Serious: No
  Sender: FDA-Public Use
  Company Number: US-ACORDA-ACO_165416_2020

PATIENT
  Age: 61 Year
  Sex: Female

DRUGS (28)
  1. AMPYRA [Suspect]
     Active Substance: DALFAMPRIDINE
     Indication: Multiple sclerosis
     Dosage: 10 MILLIGRAM, BID
     Route: 048
     Dates: start: 20150717
  2. DALFAMPRIDINE [Suspect]
     Active Substance: DALFAMPRIDINE
     Indication: Product used for unknown indication
     Dosage: 10 MILLIGRAM, BID
     Route: 048
  3. TECFIDERA [Suspect]
     Active Substance: DIMETHYL FUMARATE
     Indication: Multiple sclerosis
     Dosage: 240 MILLIGRAM, BID
     Route: 048
     Dates: start: 20150717
  4. DIMETHYL FUMARATE [Suspect]
     Active Substance: DIMETHYL FUMARATE
     Indication: Product used for unknown indication
     Dosage: UNK
     Route: 065
  5. IBUPROFEN [Concomitant]
     Active Substance: IBUPROFEN
     Indication: Pain in extremity
     Dosage: 800 MG, TAKE 1 TABLET ONE TIME EACH DAY
     Route: 048
  6. IBUPROFEN [Concomitant]
     Active Substance: IBUPROFEN
     Dosage: 1 TABLET BID PRN
     Route: 048
  7. ALBUTEROL [Concomitant]
     Active Substance: ALBUTEROL
     Indication: Product used for unknown indication
     Dosage: 2.5MG/3ML (0.083%) NEBULIZER SOLUTION, TAKE 3ML (2.5 MG TOTAL) BY NEBULIZATION 4 TIMES A DAY
     Route: 065
  8. ASPIRIN [Concomitant]
     Active Substance: ASPIRIN
     Indication: Product used for unknown indication
     Dosage: 81 MG, ONE TIME EACH DAY
     Route: 048
  9. LIORESAL [Concomitant]
     Active Substance: BACLOFEN
     Indication: Product used for unknown indication
     Dosage: 10 MG TABLET, TAKE 3 TABLETS IN THE MORNING, 2.5 TABLET IN THE AFTERNOON, 2.5 TABLET IN THE EVENING
     Route: 048
  10. ZYRTEC [Concomitant]
     Active Substance: CETIRIZINE HYDROCHLORIDE
     Indication: Product used for unknown indication
     Dosage: 10 MG TABLET, ONE TIME EACH DAY
     Route: 048
  11. FOLIC ACID [Concomitant]
     Active Substance: FOLIC ACID
     Indication: Product used for unknown indication
     Dosage: 0.8 MG, TAKE 1 CAPSULE DAILY
     Route: 048
  12. ADVIL [Concomitant]
     Active Substance: IBUPROFEN
     Indication: Product used for unknown indication
     Dosage: 800 MG TABLET, ONE TIME EACH DAY
     Route: 048
  13. SYNTHROID [Concomitant]
     Active Substance: LEVOTHYROXINE SODIUM
     Indication: Product used for unknown indication
     Dosage: 88 MCG, 1 TABLET DAILY MONDAY THROUGH SATURDAY AND 2 PILLS ON SUNDAY
     Route: 048
  14. LEVOTHROID [Concomitant]
     Active Substance: LEVOTHYROXINE SODIUM
     Indication: Product used for unknown indication
     Dosage: 1 TABLET DAILY MONDAY THROUGH SATURDAY AND 2 PILLS ON SUNDAY
     Route: 065
  15. MAGNESIUM CITRATE [Concomitant]
     Active Substance: MAGNESIUM CITRATE
     Indication: Product used for unknown indication
     Dosage: 125 MG, TAKE 2 CAPSULES ONE TIME EACH DAY
     Route: 048
  16. NITRO BID [Concomitant]
     Indication: Product used for unknown indication
     Dosage: PLACE 0.5 INCHES ON THE SKIN TWO TIMES A DAY
     Route: 065
  17. ADIPEX-P [Concomitant]
     Active Substance: PHENTERMINE HYDROCHLORIDE
     Indication: Product used for unknown indication
     Dosage: 37.5 MG TABLET, 1 TABLET ONE TIME EACH DAY BEFORE BREAKFAST
     Route: 048
  18. TERIFLUNOMIDE [Concomitant]
     Active Substance: TERIFLUNOMIDE
     Indication: Product used for unknown indication
     Dosage: 7 MG TABLET, ONE TIME EACH DAY
     Route: 048
  19. ULTRAM [Concomitant]
     Active Substance: TRAMADOL HYDROCHLORIDE
     Indication: Pain
     Dosage: 50 MG, 1 TABLET EVERY 8 HOURS IF NEEDED
     Route: 048
  20. NEURONTIN [Concomitant]
     Active Substance: GABAPENTIN
     Indication: Product used for unknown indication
     Dosage: 300 MG, 1 TABLET QHS, MAY INCREASE BY 1 TAB PER WEEK UP TO 3 CAPSULES QHS
     Route: 048
  21. VIBRAMYCIN [Concomitant]
     Active Substance: DOXYCYCLINE
     Indication: Product used for unknown indication
     Dosage: 100 MG
     Route: 065
  22. HYDROCORTISONE [Concomitant]
     Active Substance: HYDROCORTISONE
     Indication: Product used for unknown indication
     Dosage: 2.5 PERCENT OINTMENT
     Route: 065
  23. TRENTAL [Concomitant]
     Active Substance: PENTOXIFYLLINE
     Indication: Product used for unknown indication
     Dosage: 400 MG
     Route: 065
  24. BACLOFEN [Concomitant]
     Active Substance: BACLOFEN
     Indication: Product used for unknown indication
     Dosage: 10 MG, 3 TABLETS IN THE MORNING, 2.5 TABLET IN THE AFTERNOON, 2.5 TABLET IN THE EVENING
     Route: 048
  25. CETIRIZINE [Concomitant]
     Active Substance: CETIRIZINE HYDROCHLORIDE
     Indication: Product used for unknown indication
     Dosage: 10 MG, ONE TIME EACH DAY
     Route: 048
  26. GABAPENTIN [Concomitant]
     Active Substance: GABAPENTIN
     Indication: Product used for unknown indication
     Dosage: 300 MG, 1 TABLET QHS, MAY INCREASE BY 1 TAB PER WEEK UP TO 3 CAPSULES QHS
     Route: 048
  27. PHENTERMINE [PHENTERMINE HYDROCHLORIDE] [Concomitant]
     Indication: Asthenia
     Dosage: 37.5 MG, 1 TABLET, ONE TIME EACH DAY BEFORE BREAKFAST
     Route: 048
  28. VITAMIN D NOS [Concomitant]
     Active Substance: VITAMIN D NOS
     Indication: Product used for unknown indication
     Dosage: DAILY
     Route: 065

REACTIONS (28)
  - Musculoskeletal stiffness [Not Recovered/Not Resolved]
  - Dermatitis [Unknown]
  - Hypothyroidism [Unknown]
  - Bronchiectasis [Unknown]
  - Rash [Unknown]
  - Eye swelling [Unknown]
  - Dysphonia [Unknown]
  - Throat irritation [Unknown]
  - Blepharitis [Unknown]
  - Condition aggravated [Unknown]
  - Paresis [Unknown]
  - Muscle spasms [Unknown]
  - Pain [Unknown]
  - Dyspnoea [Unknown]
  - Dysstasia [Unknown]
  - Somnolence [Unknown]
  - Monoparesis [Unknown]
  - Muscular weakness [Unknown]
  - Temperature intolerance [Unknown]
  - Limb discomfort [Unknown]
  - Basedow^s disease [Unknown]
  - Secondary progressive multiple sclerosis [Unknown]
  - Feeling abnormal [Unknown]
  - Fatigue [Unknown]
  - Dizziness [Unknown]
  - Gait disturbance [Unknown]
  - Drug hypersensitivity [Unknown]
  - Therapy cessation [Unknown]

NARRATIVE: CASE EVENT DATE: 20191001
